FAERS Safety Report 8862855 (Version 2)
Quarter: 2012Q4

REPORT INFORMATION
  Report Type: 
  Country: JP (occurrence: JP)
  Receive Date: 20121026
  Receipt Date: 20121114
  Transmission Date: 20130627
  Serious: Yes (Death)
  Sender: FDA-Public Use
  Company Number: JP-GLAXOSMITHKLINE-B0839560A

PATIENT
  Age: 89 Year
  Sex: Female
  Weight: 39 kg

DRUGS (1)
  1. ZOVIRAX [Suspect]
     Indication: ENCEPHALITIS HERPES
     Route: 042

REACTIONS (2)
  - Herpes simplex encephalitis [Fatal]
  - Drug resistance [Fatal]
